FAERS Safety Report 12827940 (Version 1)
Quarter: 2016Q4

REPORT INFORMATION
  Report Type: Spontaneous
  Country: BE (occurrence: BE)
  Receive Date: 20161007
  Receipt Date: 20161007
  Transmission Date: 20170207
  Serious: Yes (Other)
  Sender: FDA-Public Use
  Company Number: BE-FERRINGPH-2016FE05393

PATIENT

DRUGS (4)
  1. FIRMAGON [Suspect]
     Active Substance: DEGARELIX ACETATE
     Indication: PROSTATE CANCER METASTATIC
     Dosage: 80 MG, UNK
     Route: 058
     Dates: start: 20160909
  2. FIRMAGON [Suspect]
     Active Substance: DEGARELIX ACETATE
     Dosage: UNK
     Route: 065
     Dates: start: 20160609
  3. COVERSYL                           /00790702/ [Concomitant]
     Active Substance: PERINDOPRIL
     Dosage: 1/2 TABLET, DAILY
     Route: 048
  4. STEOVIT D3 [Concomitant]
     Active Substance: CALCIUM CARBONATE\CHOLECALCIFEROL
     Dosage: 1 TABLET, DAILY
     Route: 048

REACTIONS (7)
  - Abdominal distension [Recovered/Resolved]
  - Fatigue [Recovered/Resolved]
  - Inflammation [Recovered/Resolved]
  - Headache [Recovered/Resolved]
  - Pyrexia [Recovered/Resolved]
  - Hypoaesthesia [Recovered/Resolved]
  - Arthralgia [Recovered/Resolved]

NARRATIVE: CASE EVENT DATE: 20160913
